FAERS Safety Report 5398844-5 (Version None)
Quarter: 2007Q3

REPORT INFORMATION
  Report Type: 
  Country: None (occurrence: None)
  Receive Date: 20070725
  Receipt Date: 20070725
  Transmission Date: 20080115
  Serious: Yes (Death, Life-Threatening)
  Sender: FDA-Public Use
  Company Number: None

PATIENT
  Age: 26 Year
  Sex: Female
  Weight: 127.0072 kg

DRUGS (6)
  1. INVEGA [Suspect]
     Indication: BIPOLAR DISORDER
     Dosage: 3MG DAILY ORAL X 1 DOSE (HAD BEEN ON @HOME)
     Route: 048
     Dates: start: 20070606
  2. INVEGA [Suspect]
     Indication: BORDERLINE PERSONALITY DISORDER
     Dosage: 3MG DAILY ORAL X 1 DOSE (HAD BEEN ON @HOME)
     Route: 048
     Dates: start: 20070606
  3. INVEGA [Suspect]
     Indication: SUICIDAL IDEATION
     Dosage: 3MG DAILY ORAL X 1 DOSE (HAD BEEN ON @HOME)
     Route: 048
     Dates: start: 20070606
  4. INVEGA [Suspect]
     Indication: BIPOLAR DISORDER
     Dosage: 6MG DAILY ORAL
     Route: 048
     Dates: start: 20070607, end: 20070610
  5. INVEGA [Suspect]
     Indication: BORDERLINE PERSONALITY DISORDER
     Dosage: 6MG DAILY ORAL
     Route: 048
     Dates: start: 20070607, end: 20070610
  6. INVEGA [Suspect]
     Indication: SUICIDAL IDEATION
     Dosage: 6MG DAILY ORAL
     Route: 048
     Dates: start: 20070607, end: 20070610

REACTIONS (5)
  - CONVULSION [None]
  - HYPERHIDROSIS [None]
  - RESPIRATORY DISTRESS [None]
  - TORSADE DE POINTES [None]
  - UNRESPONSIVE TO STIMULI [None]
